FAERS Safety Report 21078751 (Version 1)
Quarter: 2022Q3

REPORT INFORMATION
  Report Type: Spontaneous
  Country: US (occurrence: US)
  Receive Date: 20220713
  Receipt Date: 20220713
  Transmission Date: 20221027
  Serious: No
  Sender: FDA-Public Use
  Company Number: US-SA-SAC20220711001142

PATIENT
  Sex: Male

DRUGS (2)
  1. AUBAGIO [Suspect]
     Active Substance: TERIFLUNOMIDE
     Indication: Multiple sclerosis
     Dosage: UNK
     Route: 048
  2. GLATIRAMER [Concomitant]
     Active Substance: GLATIRAMER
     Dosage: UNK

REACTIONS (8)
  - Balance disorder [Unknown]
  - Fatigue [Unknown]
  - Vertigo [Unknown]
  - Tremor [Unknown]
  - Hypoaesthesia [Unknown]
  - Hepatic enzyme increased [Unknown]
  - Headache [Unknown]
  - Paraesthesia [Unknown]
